FAERS Safety Report 17012303 (Version 2)
Quarter: 2019Q4

REPORT INFORMATION
  Report Type: Spontaneous
  Country: US (occurrence: US)
  Receive Date: 20191108
  Receipt Date: 20191111
  Transmission Date: 20200122
  Serious: Yes (Other)
  Sender: FDA-Public Use
  Company Number: US-TEVA-2019-US-1132917

PATIENT
  Sex: Female

DRUGS (1)
  1. SPRINTEC [Suspect]
     Active Substance: ETHINYL ESTRADIOL\NORGESTIMATE
     Indication: CONTRACEPTION
     Dosage: DOSE STRENGTH: NORGESTIMATE  0.250 MG AND ETHINYL ESTRADIOL 0.035 MG
     Route: 065
     Dates: end: 201905

REACTIONS (9)
  - Increased appetite [Unknown]
  - Visceral pain [Unknown]
  - Vomiting [Unknown]
  - Weight increased [Unknown]
  - Menorrhagia [Unknown]
  - Abdominal pain [Unknown]
  - Nausea [Unknown]
  - Thrombosis [Unknown]
  - Abdominal distension [Unknown]
